FAERS Safety Report 24332491 (Version 2)
Quarter: 2025Q4

REPORT INFORMATION
  Report Type: Spontaneous
  Country: EU (occurrence: EU)
  Receive Date: 20240918
  Receipt Date: 20251129
  Transmission Date: 20260118
  Serious: Yes (Life-Threatening, Other)
  Sender: CELLTRION
  Company Number: EU-PHARMARES-2024-00150

PATIENT

DRUGS (20)
  1. BEVACIZUMAB [Suspect]
     Active Substance: BEVACIZUMAB
     Indication: Metastases to liver
     Dosage: FOLFIRI REGIMEN
  2. BEVACIZUMAB [Suspect]
     Active Substance: BEVACIZUMAB
     Indication: Colorectal cancer metastatic
     Dosage: FUFA REGIMEN
  3. BEVACIZUMAB [Suspect]
     Active Substance: BEVACIZUMAB
     Indication: Metastases to lung
     Dosage: 5 MG/KG BODY WEIGHT REPEATED EVERY 2 WEEKS
     Dates: start: 201904, end: 2019
  4. BEVACIZUMAB [Suspect]
     Active Substance: BEVACIZUMAB
     Indication: Adenocarcinoma of colon
  5. FLUOROURACIL [Suspect]
     Active Substance: FLUOROURACIL
     Indication: Metastases to lung
     Dosage: FOLFIRI REGIMEN
  6. FLUOROURACIL [Suspect]
     Active Substance: FLUOROURACIL
     Indication: Colorectal cancer metastatic
     Dosage: FUFA REGIMEN
  7. FLUOROURACIL [Suspect]
     Active Substance: FLUOROURACIL
     Indication: Adenocarcinoma of colon
     Dosage: 2400 MG/M2 EVERY CYCLICAL/5-FLUOROURACIL 2,400 MG/M2 CONTINUOUS INFUSION FOR 42 H/ FOLFIRI REGIMEN
     Dates: start: 201904, end: 2019
  8. LEUCOVORIN CALCIUM [Suspect]
     Active Substance: LEUCOVORIN CALCIUM
     Indication: Adenocarcinoma of colon
     Dosage: FUFA REGIMEN
  9. LEUCOVORIN CALCIUM [Suspect]
     Active Substance: LEUCOVORIN CALCIUM
     Indication: Colorectal cancer metastatic
     Dosage: FOLFIRI REGIMEN
  10. LEUCOVORIN CALCIUM [Suspect]
     Active Substance: LEUCOVORIN CALCIUM
     Indication: Metastases to liver
     Dosage: 400 MG/M2 EVERY CYCLICAL/FOLINIC ACID 400 MG/M2 EVERY 2 WEEKS, 1 CYCLE
     Dates: start: 201904, end: 2019
  11. LEUCOVORIN CALCIUM [Suspect]
     Active Substance: LEUCOVORIN CALCIUM
     Indication: Metastases to lung
  12. IRINOTECAN [Suspect]
     Active Substance: IRINOTECAN
     Indication: Adenocarcinoma of colon
     Dosage: FOLFIRI REGIMEN
  13. IRINOTECAN [Suspect]
     Active Substance: IRINOTECAN
     Indication: Metastases to lung
     Dosage: FUFA REGIMEN
  14. IRINOTECAN [Suspect]
     Active Substance: IRINOTECAN
     Indication: Colorectal cancer metastatic
     Dosage: 180 MG/M2 EVERY CYCLICAL/IRINOTECAN 180 MG/M2 EVERY 2 WEEKS, 1 CYCLE
     Dates: start: 201904, end: 2019
  15. IRINOTECAN [Suspect]
     Active Substance: IRINOTECAN
     Indication: Metastases to liver
  16. METFORMIN [Concomitant]
     Active Substance: METFORMIN HYDROCHLORIDE
     Indication: Type 2 diabetes mellitus
     Dosage: 2000 MILLIGRAM, EVERY 1 DAY
  17. METFORMIN [Concomitant]
     Active Substance: METFORMIN HYDROCHLORIDE
     Dosage: 1000 MILLIGRAM EVERY 12 HOURS
  18. INSULIN NOS [Concomitant]
     Active Substance: INSULIN NOS
     Indication: Diabetes mellitus
  19. INSULIN NOS [Concomitant]
     Active Substance: INSULIN NOS
     Indication: Type 1 diabetes mellitus
  20. DEXAMETHASONE [Concomitant]
     Active Substance: DEXAMETHASONE
     Indication: Chemotherapy side effect prophylaxis

REACTIONS (5)
  - Infection [Unknown]
  - Condition aggravated [Unknown]
  - Anal inflammation [Unknown]
  - Stomatitis [Unknown]
  - Intentional product use issue [Unknown]

NARRATIVE: CASE EVENT DATE: 20161101
